FAERS Safety Report 20766262 (Version 1)
Quarter: 2022Q2

REPORT INFORMATION
  Report Type: Spontaneous
  Country: US (occurrence: US)
  Receive Date: 20220428
  Receipt Date: 20220428
  Transmission Date: 20220721
  Serious: No
  Sender: FDA-Public Use
  Company Number: US-SEATTLE GENETICS-2022SGN01173

PATIENT
  Sex: Female

DRUGS (4)
  1. TUKYSA [Suspect]
     Active Substance: TUCATINIB
     Indication: Breast cancer
     Dosage: 300 MG, BID
     Route: 065
     Dates: start: 202102, end: 202103
  2. TUKYSA [Suspect]
     Active Substance: TUCATINIB
     Indication: Brain cancer metastatic
     Dosage: 100 MG, BID
     Route: 065
     Dates: start: 202112, end: 20220211
  3. XELODA [Concomitant]
     Active Substance: CAPECITABINE
     Indication: Breast cancer
  4. XELODA [Concomitant]
     Active Substance: CAPECITABINE
     Indication: Brain cancer metastatic

REACTIONS (3)
  - Diarrhoea [Unknown]
  - Vomiting [Unknown]
  - Nausea [Unknown]
